FAERS Safety Report 16883140 (Version 1)
Quarter: 2019Q4

REPORT INFORMATION
  Report Type: Spontaneous
  Country: US (occurrence: US)
  Receive Date: 20191004
  Receipt Date: 20191004
  Transmission Date: 20200122
  Serious: No
  Sender: FDA-Public Use
  Company Number: US-SA-2019SA268670

PATIENT
  Age: 48 Year
  Sex: Male

DRUGS (1)
  1. LOVENOX [Suspect]
     Active Substance: ENOXAPARIN SODIUM
     Indication: KNEE OPERATION
     Dosage: 60 MG, QD
     Route: 065
     Dates: start: 20190925

REACTIONS (1)
  - Needle issue [Unknown]
